FAERS Safety Report 7319955-0 (Version None)
Quarter: 2011Q1

REPORT INFORMATION
  Report Type: 
  Country: None (occurrence: None)
  Receive Date: 20110228
  Receipt Date: 20100308
  Transmission Date: 20110831
  Serious: Yes (Other)
  Sender: FDA-Public Use
  Company Number: B0640941A

PATIENT
  Age: 8 Year
  Sex: Male

DRUGS (1)
  1. LAMOTRIGINE [Suspect]
     Indication: EPILEPSY
     Dosage: 2.7MGK PER DAY
     Route: 065

REACTIONS (4)
  - AGGRESSION [None]
  - INTENTIONAL SELF-INJURY [None]
  - PSYCHOMOTOR HYPERACTIVITY [None]
  - CONVULSION [None]
